FAERS Safety Report 8604563-1 (Version None)
Quarter: 2012Q3

REPORT INFORMATION
  Report Type: 
  Country: None (occurrence: None)
  Receive Date: 20120808
  Receipt Date: 20120808
  Transmission Date: 20120928
  Serious: Yes (Other)
  Sender: FDA-Public Use
  Company Number: None

PATIENT
  Age: 65 Year
  Sex: Female
  Weight: 66.6788 kg

DRUGS (1)
  1. NORVASC [Suspect]
     Indication: HYPERTENSION
     Dosage: 5 MG. 2 TIMES A DAY PO
     Route: 048
     Dates: start: 20090101, end: 20120101

REACTIONS (3)
  - NEUROPATHY PERIPHERAL [None]
  - MUSCLE TWITCHING [None]
  - GLUCOSE TOLERANCE IMPAIRED [None]
